FAERS Safety Report 8135546-6 (Version None)
Quarter: 2012Q1

REPORT INFORMATION
  Report Type: 
  Country: None (occurrence: None)
  Receive Date: 20120210
  Receipt Date: 20120126
  Transmission Date: 20120608
  Serious: Yes (Death, Hospitalization)
  Sender: FDA-Public Use
  Company Number: TCI2011A04297

PATIENT
  Age: 57 Year
  Sex: Male

DRUGS (17)
  1. DILTIAZEM HYDROCHLORIDE [Concomitant]
  2. LIVALO [Concomitant]
  3. ASPIRIN [Concomitant]
  4. PERINDOPRIL ERBUMINE [Concomitant]
  5. BEBPRICOR (BEPRIDIL HYDROCHLORIDE MONOHYDRATE) [Concomitant]
  6. LANSOPRAZOLE [Suspect]
     Indication: GASTROINTESTINAL HAEMORRHAGE
     Route: 048
     Dates: end: 20110727
  7. ACTOS [Concomitant]
  8. WARFARIN SODIUM [Concomitant]
  9. AMARYL [Concomitant]
  10. METFORMIN HYDROCHLORIDE [Concomitant]
  11. FLUOROURACIL [Concomitant]
  12. CALBLOCK (AZELNIDIPINE) [Concomitant]
  13. MAGLAX (MAGNESIUM OXIDE) [Concomitant]
  14. PURSENNIDE (SENNOSIDE A+B) [Concomitant]
  15. LEVOLEUCOVORIN CALCIUM [Concomitant]
  16. OXYCONTIN [Concomitant]
  17. AMOBAN (ZOPICLONE) [Concomitant]

REACTIONS (2)
  - TUMOUR HAEMORRHAGE [None]
  - FAECES PALE [None]
